FAERS Safety Report 9407227 (Version 2)
Quarter: 2013Q3

REPORT INFORMATION
  Report Type: Spontaneous
  Country: NL (occurrence: NL)
  Receive Date: 20130718
  Receipt Date: 20130725
  Transmission Date: 20140515
  Serious: Yes (Life-Threatening)
  Sender: FDA-Public Use
  Company Number: NL-PFIZER INC-2005013644

PATIENT
  Age: 59 Year
  Sex: Male

DRUGS (9)
  1. NEURONTIN [Suspect]
     Indication: DIABETIC NEUROPATHY
     Dosage: 300 MG, 3X/DAY
     Route: 048
     Dates: start: 20041129
  2. NEURONTIN [Interacting]
     Indication: DIABETIC FOOT
  3. OMEPRAZOLE [Suspect]
     Indication: DYSPEPSIA
     Dosage: 20 MG DAILY
     Route: 048
     Dates: start: 200403
  4. INSULIN INSULATARD NPH NORDISK [Interacting]
     Indication: ILL-DEFINED DISORDER
     Route: 058
     Dates: start: 2000
  5. INSULIN ACTRAPID [Interacting]
     Indication: ILL-DEFINED DISORDER
     Route: 058
     Dates: start: 2000
  6. POLYSPECTRAN OS [Concomitant]
     Route: 047
     Dates: start: 200309
  7. ALFUZOSIN [Concomitant]
     Route: 048
     Dates: start: 200303
  8. BLOOD AND RELATED PRODUCTS [Concomitant]
     Route: 047
     Dates: start: 2003
  9. PREDNISOLONE [Concomitant]
     Route: 047

REACTIONS (6)
  - Off label use [Unknown]
  - Drug interaction [Unknown]
  - Loss of consciousness [Recovered/Resolved]
  - Coma [Recovered/Resolved]
  - Hypoglycaemia [Recovered/Resolved]
  - Tremor [Recovered/Resolved]
